FAERS Safety Report 23817427 (Version 1)
Quarter: 2024Q2

REPORT INFORMATION
  Report Type: Spontaneous
  Country: US (occurrence: US)
  Receive Date: 20240505
  Receipt Date: 20240505
  Transmission Date: 20240716
  Serious: No
  Sender: FDA-Public Use
  Company Number: US-SA-SAC20240425000613

PATIENT
  Sex: Female
  Weight: 118 kg

DRUGS (6)
  1. DUPIXENT [Suspect]
     Active Substance: DUPILUMAB
     Indication: Dermatitis atopic
     Dosage: 300 MG, QOW
     Route: 058
     Dates: start: 20210723
  2. CLOBETASOL [Concomitant]
     Active Substance: CLOBETASOL
  3. HYDROXYZINE HYDROCHLORIDE [Concomitant]
     Active Substance: HYDROXYZINE HYDROCHLORIDE
  4. CERAVE HEALING [Concomitant]
     Active Substance: PETROLATUM
  5. ALLERGY RELIEF [CETIRIZINE HYDROCHLORIDE] [Concomitant]
  6. DAILY VITE MULTIVITAMIN FOR CHILDREN [Concomitant]

REACTIONS (1)
  - Rash [Unknown]
